FAERS Safety Report 11680089 (Version 2)
Quarter: 2015Q4

REPORT INFORMATION
  Report Type: Spontaneous
  Country: US (occurrence: US)
  Receive Date: 20151027
  Receipt Date: 20151104
  Transmission Date: 20160304
  Serious: No
  Sender: FDA-Public Use
  Company Number: US-ELI_LILLY_AND_COMPANY-US201009005713

PATIENT
  Sex: Female

DRUGS (5)
  1. FLU [Concomitant]
     Active Substance: INFLUENZA VIRUS VACCINE
  2. ROCEPHIN [Concomitant]
     Active Substance: CEFTRIAXONE SODIUM
  3. FORTEO [Suspect]
     Active Substance: TERIPARATIDE
     Dosage: 20 UG, DAILY (1/D)
  4. FORTEO [Suspect]
     Active Substance: TERIPARATIDE
     Indication: OSTEOPOROSIS
     Dosage: 20 UG, DAILY (1/D)
  5. XOLAIR [Concomitant]
     Active Substance: OMALIZUMAB
     Dosage: UNK, 2/M

REACTIONS (13)
  - Influenza [Not Recovered/Not Resolved]
  - Sinus congestion [Unknown]
  - Speech disorder [Unknown]
  - Headache [Not Recovered/Not Resolved]
  - Movement disorder [Unknown]
  - Aphonia [Unknown]
  - Ear pain [Unknown]
  - Bone pain [Unknown]
  - Hypertension [Unknown]
  - Oropharyngeal pain [Unknown]
  - Oral fungal infection [Recovering/Resolving]
  - Cough [Not Recovered/Not Resolved]
  - Malaise [Not Recovered/Not Resolved]
